FAERS Safety Report 8851435 (Version 2)
Quarter: 2012Q4

REPORT INFORMATION
  Report Type: 
  Country: JP (occurrence: JP)
  Receive Date: 20121021
  Receipt Date: 20121113
  Transmission Date: 20130627
  Serious: Yes (Hospitalization)
  Sender: FDA-Public Use
  Company Number: JP-009507513-1210JPN005428

PATIENT
  Age: 58 Year
  Sex: Female

DRUGS (10)
  1. EMEND [Suspect]
     Indication: PROPHYLAXIS OF NAUSEA AND VOMITING
     Dosage: 125 mg, Once
     Route: 048
     Dates: start: 20120822, end: 20120822
  2. EMEND [Suspect]
     Dosage: 80 mg, qd
     Route: 048
     Dates: start: 20120823, end: 20120824
  3. EMEND [Suspect]
     Dosage: 125 mg, Once
     Route: 048
     Dates: start: 20120919, end: 20120919
  4. EMEND [Suspect]
     Dosage: 80 mg, qd
     Route: 048
     Dates: start: 20120920, end: 20120921
  5. ALOXI [Suspect]
     Indication: PROPHYLAXIS OF NAUSEA AND VOMITING
     Dosage: 0.75 mg, qd
     Route: 041
     Dates: start: 20120822
  6. ENDOXAN [Concomitant]
     Dosage: UNK
     Dates: start: 20120822, end: 20120822
  7. FARMORUBICIN [Concomitant]
     Dosage: UNK
     Dates: start: 20120822
  8. DECADRON (DEXAMETHASONE SODIUM PHOSPHATE) [Concomitant]
     Dosage: UNK
     Dates: start: 20120822
  9. DECADRON (DEXAMETHASONE) [Concomitant]
     Dosage: UNK
     Dates: start: 20120823
  10. ADALAT CR [Concomitant]
     Dosage: UNK
     Dates: start: 20090626

REACTIONS (1)
  - Erythema multiforme [Recovering/Resolving]
